FAERS Safety Report 14324163 (Version 1)
Quarter: 2017Q4

REPORT INFORMATION
  Report Type: Report from Study
  Country: JP (occurrence: JP)
  Receive Date: 20171226
  Receipt Date: 20171226
  Transmission Date: 20180321
  Serious: Yes (Hospitalization)
  Sender: FDA-Public Use
  Company Number: JP-DSJP-DSJ-2016-139345

PATIENT

DRUGS (14)
  1. XARELTO [Concomitant]
     Active Substance: RIVAROXABAN
     Dosage: 10MG/DAY
     Route: 048
     Dates: end: 20151109
  2. NEXIUM [Concomitant]
     Active Substance: ESOMEPRAZOLE MAGNESIUM
     Dosage: 20MG/DAY
     Route: 048
     Dates: end: 20160310
  3. STROCAIN                           /00130301/ [Concomitant]
     Dosage: 15MG/DAY
     Route: 048
     Dates: start: 20160328, end: 20161219
  4. EDOXABAN [Suspect]
     Active Substance: EDOXABAN TOSYLATE
     Indication: ATRIAL FIBRILLATION
     Dosage: 30 MG, QD
     Route: 048
     Dates: start: 20151110, end: 20170118
  5. AZILVA [Concomitant]
     Active Substance: AZILSARTAN KAMEDOXOMIL
     Dosage: 20MG/DAY
     Route: 048
  6. TRICHLORMETHIAZIDE [Concomitant]
     Active Substance: TRICHLORMETHIAZIDE
     Dosage: 2MG/DAY
     Route: 048
  7. FEBURIC [Concomitant]
     Active Substance: FEBUXOSTAT
     Dosage: 20MG/DAY
     Route: 048
  8. EDOXABAN [Suspect]
     Active Substance: EDOXABAN TOSYLATE
     Dosage: 30 MG, QD
     Route: 048
     Dates: start: 20170122
  9. FERROUS SODIUM CITRATE [Concomitant]
     Active Substance: SODIUM FERROUS CITRATE
     Dosage: 100MG/DAY
     Route: 048
     Dates: start: 20160502, end: 20160815
  10. TAKECAB [Concomitant]
     Active Substance: VONOPRAZAN FUMURATE
     Dosage: 10MG/DAY
     Route: 048
     Dates: start: 20160311
  11. LORCAM                             /01449001/ [Concomitant]
     Dosage: 12MG/DAY
     Route: 048
  12. NIFEDIPINE. [Concomitant]
     Active Substance: NIFEDIPINE
     Dosage: 20MG/DAY
     Route: 048
  13. MUCOSTA [Concomitant]
     Active Substance: REBAMIPIDE
     Dosage: 300MG/DAY
     Route: 048
     Dates: start: 20160311
  14. FERROUS SODIUM CITRATE [Concomitant]
     Active Substance: SODIUM FERROUS CITRATE
     Dosage: 50MG/DAY
     Route: 048
     Dates: start: 20160816, end: 20170530

REACTIONS (3)
  - Inguinal hernia [Recovered/Resolved]
  - Iron deficiency anaemia [Recovered/Resolved]
  - Gastric ulcer [Recovering/Resolving]

NARRATIVE: CASE EVENT DATE: 20160310
